FAERS Safety Report 8791616 (Version 4)
Quarter: 2012Q4

REPORT INFORMATION
  Report Type: 
  Country: US (occurrence: US)
  Receive Date: 20120918
  Receipt Date: 20121029
  Transmission Date: 20130627
  Serious: Yes (Other)
  Sender: FDA-Public Use
  Company Number: US-PFIZER INC-2012228033

PATIENT
  Age: 34 Year
  Sex: Female
  Weight: 80.73 kg

DRUGS (3)
  1. DETROL LA [Suspect]
     Indication: OVERACTIVE BLADDER
     Dosage: 4 mg, daily
  2. VERAPAMIL HCL [Suspect]
     Indication: BLOOD PRESSURE HIGH
     Dosage: UNK
     Dates: start: 2005, end: 2010
  3. NORVASC [Suspect]
     Indication: BLOOD PRESSURE INCREASED
     Dosage: 10 mg, 1x/day

REACTIONS (5)
  - Thyroid cancer [Unknown]
  - Neoplasm malignant [Unknown]
  - Metastases to lymph nodes [Unknown]
  - Blood pressure increased [Unknown]
  - Blood cholesterol increased [Unknown]
